FAERS Safety Report 4433700-8 (Version None)
Quarter: 2004Q3

REPORT INFORMATION
  Report Type: 
  Country: None (occurrence: None)
  Receive Date: 20040824
  Receipt Date: 20040813
  Transmission Date: 20050211
  Serious: Yes (Hospitalization)
  Sender: FDA-Public Use
  Company Number: 2002125329US

PATIENT
  Age: 81 Year
  Sex: Female
  Weight: 68 kg

DRUGS (5)
  1. ROGAINE [Suspect]
     Indication: HYPOTRICHOSIS
     Dosage: 1 ML, BID, TOPICAL
     Route: 048
     Dates: start: 19720101, end: 20040601
  2. NEURONTIN [Concomitant]
  3. SEROQUEL [Concomitant]
  4. MULTIVITAMIN [Concomitant]
  5. ASPIRIN [Concomitant]

REACTIONS (2)
  - ALOPECIA [None]
  - INTESTINAL OBSTRUCTION [None]
